FAERS Safety Report 18686692 (Version 12)
Quarter: 2021Q2

REPORT INFORMATION
  Report Type: Report from Study
  Country: None (occurrence: NL)
  Receive Date: 20201230
  Receipt Date: 20210607
  Transmission Date: 20210717
  Serious: Yes (Hospitalization, Other)
  Sender: FDA-Public Use
  Company Number: NL-ABBVIE-19K-114-2961559-00

PATIENT
  Age: 74 Year
  Sex: Female

DRUGS (19)
  1. DUODOPA [Suspect]
     Active Substance: CARBIDOPA\LEVODOPA
     Dosage: MD: 3.0ML; CD: 2.7ML/H; ED: 2.0ML REMAINS AT 16 HOURS
     Route: 050
     Dates: end: 20201224
  2. DUODOPA [Suspect]
     Active Substance: CARBIDOPA\LEVODOPA
     Dosage: MD: 3.0ML; CD: 1.4ML/H; ED: 1.0ML
     Route: 050
  3. DUODOPA [Suspect]
     Active Substance: CARBIDOPA\LEVODOPA
     Dosage: MD: 3.0ML; CD: 1.2ML/H; ED: 1.0ML
     Route: 050
  4. DUODOPA [Suspect]
     Active Substance: CARBIDOPA\LEVODOPA
     Dosage: THE CD WAS DECREASED FROM 4,0 TO 3,8.?MD 9
     Route: 050
     Dates: start: 201910, end: 201910
  5. DUODOPA [Suspect]
     Active Substance: CARBIDOPA\LEVODOPA
     Dosage: MD: 3.0ML; CD: 1.8ML/H; ED: 1.0ML
     Route: 050
  6. DUODOPA [Suspect]
     Active Substance: CARBIDOPA\LEVODOPA
     Dosage: MD: 3.0ML; CD: 1.3ML/H; ED: 1.0ML
     Route: 050
  7. DUODOPA [Suspect]
     Active Substance: CARBIDOPA\LEVODOPA
     Dosage: MD: 3.0ML; CD: 2.7ML/H; ED: 1.8ML
     Route: 050
  8. LEVODOPA/CARBIDOPA [Concomitant]
     Active Substance: CARBIDOPA\LEVODOPA
     Indication: PRODUCT USED FOR UNKNOWN INDICATION
  9. SERTRALINE [Concomitant]
     Active Substance: SERTRALINE HYDROCHLORIDE
     Indication: ANTIDEPRESSANT THERAPY
     Route: 048
     Dates: start: 20210101
  10. DUODOPA [Suspect]
     Active Substance: CARBIDOPA\LEVODOPA
     Dosage: MD: 3.0ML; CD: 2.7ML/H; ED: 2.0ML REMAINS AT 16 HOURS
     Route: 050
     Dates: start: 20201229, end: 202012
  11. DUODOPA [Suspect]
     Active Substance: CARBIDOPA\LEVODOPA
     Dosage: MD: 3.0ML; CD: 1.4ML/H; ED: 1.0ML
     Route: 050
  12. DUODOPA [Suspect]
     Active Substance: CARBIDOPA\LEVODOPA
     Dosage: MD: 3.0ML; CD: 1.4ML/H; ED: 1.0ML
     Route: 050
  13. DUODOPA [Suspect]
     Active Substance: CARBIDOPA\LEVODOPA
     Dosage: MD: 3.0ML; CD: 1.6ML/H; ED: 1.0ML
     Route: 050
  14. DUODOPA [Suspect]
     Active Substance: CARBIDOPA\LEVODOPA
     Dosage: MD: 3.0ML; CD: 1.6ML/H; ED: 1.0ML
     Route: 050
  15. DUODOPA [Suspect]
     Active Substance: CARBIDOPA\LEVODOPA
     Dosage: MD: 3.0ML; CD: 0.7ML
     Route: 050
  16. DUODOPA [Suspect]
     Active Substance: CARBIDOPA\LEVODOPA
     Dosage: MD: 3.0ML; CD: 1.2ML/H; ED: 1.0ML
     Route: 050
  17. DUODOPA [Suspect]
     Active Substance: CARBIDOPA\LEVODOPA
     Indication: PARKINSON^S DISEASE
     Dosage: 24 HOUR ADMINISTRATION, 20 MG/ML 5 MG/ML?MD 9.7 CD 3.6 ED 2.0
     Route: 050
     Dates: start: 20191001, end: 201910
  18. DUODOPA [Suspect]
     Active Substance: CARBIDOPA\LEVODOPA
     Dosage: MD: 3.0ML; CD: 3.6ML/H; ED: 2.0ML,DURATION GOES TO 16 HOURS
     Route: 050
     Dates: start: 201910
  19. DUODOPA [Suspect]
     Active Substance: CARBIDOPA\LEVODOPA
     Dosage: MD: 3.0ML; CD: 1.8ML/H; ED: 1.0ML
     Route: 050

REACTIONS (47)
  - Device leakage [Recovered/Resolved]
  - Cognitive disorder [Not Recovered/Not Resolved]
  - Stoma site discharge [Recovering/Resolving]
  - Device leakage [Unknown]
  - Restlessness [Recovering/Resolving]
  - Panic disorder [Not Recovered/Not Resolved]
  - Stoma site inflammation [Recovering/Resolving]
  - Panic reaction [Recovered/Resolved]
  - Psychiatric symptom [Recovered/Resolved]
  - Emotional distress [Recovering/Resolving]
  - On and off phenomenon [Not Recovered/Not Resolved]
  - Nausea [Recovered/Resolved]
  - Agitation [Not Recovered/Not Resolved]
  - Tremor [Not Recovered/Not Resolved]
  - Disturbance in attention [Not Recovered/Not Resolved]
  - Anger [Not Recovered/Not Resolved]
  - Parkinson^s disease [Recovered/Resolved]
  - Asthenia [Recovering/Resolving]
  - Anxiety [Not Recovered/Not Resolved]
  - Abdominal pain upper [Not Recovered/Not Resolved]
  - Decreased appetite [Recovering/Resolving]
  - Stress [Not Recovered/Not Resolved]
  - Asthenia [Not Recovered/Not Resolved]
  - Hyperkinesia [Not Recovered/Not Resolved]
  - Confusional state [Not Recovered/Not Resolved]
  - Stoma site irritation [Recovering/Resolving]
  - Weight decreased [Recovering/Resolving]
  - Dyskinesia [Not Recovered/Not Resolved]
  - Gastrointestinal perforation [Unknown]
  - Underdose [Recovered/Resolved]
  - Panic reaction [Not Recovered/Not Resolved]
  - Depressed mood [Not Recovered/Not Resolved]
  - Dyskinesia [Recovered/Resolved]
  - Unevaluable event [Not Recovered/Not Resolved]
  - Muscular weakness [Not Recovered/Not Resolved]
  - Medical device site irritation [Recovering/Resolving]
  - Gastric ulcer [Recovered/Resolved]
  - Crying [Recovered/Resolved]
  - Speech disorder [Not Recovered/Not Resolved]
  - Mental disorder [Not Recovered/Not Resolved]
  - Enteral nutrition [Unknown]
  - Device dislocation [Unknown]
  - Muscle rigidity [Not Recovered/Not Resolved]
  - Memory impairment [Not Recovered/Not Resolved]
  - Headache [Recovered/Resolved]
  - Depression [Recovered/Resolved]
  - Device issue [Unknown]

NARRATIVE: CASE EVENT DATE: 2019
